FAERS Safety Report 4457912-2 (Version None)
Quarter: 2004Q3

REPORT INFORMATION
  Report Type: 
  Country: None (occurrence: None)
  Receive Date: 20040924
  Receipt Date: 20040913
  Transmission Date: 20050211
  Serious: Yes (Death)
  Sender: FDA-Public Use
  Company Number: JP-JNJFOC-20030702533

PATIENT
  Sex: Female

DRUGS (8)
  1. FENTANYL [Suspect]
     Indication: CANCER PAIN
     Route: 062
     Dates: start: 20030212, end: 20030218
  2. CODEINE PHOSPHATE [Suspect]
     Indication: CANCER PAIN
     Route: 049
     Dates: start: 20030204, end: 20030217
  3. FLURBIPROFEN AXETIL [Concomitant]
     Indication: CANCER PAIN
     Route: 042
     Dates: start: 20030203, end: 20030217
  4. MAGNESIUM OXIDE [Concomitant]
     Indication: CONSTIPATION
     Route: 049
     Dates: start: 20030203, end: 20030217
  5. SODIUM PICOSULFATE [Concomitant]
     Indication: CONSTIPATION
     Route: 049
     Dates: start: 20030203, end: 20030217
  6. SENNOSIDE [Concomitant]
     Indication: CONSTIPATION
     Route: 049
     Dates: start: 20030203, end: 20030217
  7. BETAMETHASONE SODIUM PHOSPHATE [Concomitant]
     Route: 042
     Dates: start: 20030204, end: 20030217
  8. FAMOTIDINE [Concomitant]
     Route: 042
     Dates: start: 20030204, end: 20030217

REACTIONS (2)
  - BLOOD PRESSURE DECREASED [None]
  - TUMOUR HAEMORRHAGE [None]
